FAERS Safety Report 9921084 (Version 2)
Quarter: 2014Q2

REPORT INFORMATION
  Report Type: Report from Study
  Country: GB (occurrence: GB)
  Receive Date: 20140225
  Receipt Date: 20140401
  Transmission Date: 20141212
  Serious: Yes (Hospitalization, Other)
  Sender: FDA-Public Use
  Company Number: GB-ROCHE-1354109

PATIENT
  Sex: Male

DRUGS (8)
  1. RANIBIZUMAB [Suspect]
     Indication: PRODUCT USED FOR UNKNOWN INDICATION
     Route: 050
     Dates: start: 20110421
  2. RANIBIZUMAB [Suspect]
     Dosage: MOST RECENT DOSE ON 28/OCT/2013
     Route: 050
     Dates: start: 20131024
  3. METFORMIN [Concomitant]
     Route: 065
     Dates: start: 2010
  4. RAMIPRIL [Concomitant]
     Route: 065
     Dates: start: 2000
  5. TAMSULOSIN [Concomitant]
     Route: 065
     Dates: start: 2010
  6. ASPIRIN [Concomitant]
     Route: 065
     Dates: start: 2000
  7. FINASTERIDE [Concomitant]
     Route: 065
     Dates: start: 2010
  8. SIMVASTATIN [Concomitant]
     Route: 065
     Dates: start: 2000

REACTIONS (3)
  - Suicide attempt [Not Recovered/Not Resolved]
  - Tendon injury [Recovering/Resolving]
  - Laceration [Recovering/Resolving]
